FAERS Safety Report 7259685-7 (Version None)
Quarter: 2011Q1

REPORT INFORMATION
  Report Type: 
  Country: None (occurrence: None)
  Receive Date: 20110130
  Receipt Date: 20100929
  Transmission Date: 20110831
  Serious: No
  Sender: FDA-Public Use
  Company Number: US-ABBOTT-10P-163-0655530-00

PATIENT
  Age: 22 Year
  Sex: Female

DRUGS (4)
  1. PRED FORTE [Concomitant]
     Indication: PRODUCT USED FOR UNKNOWN INDICATION
     Dosage: DAILY
  2. ANTIBIOTICS [Concomitant]
     Indication: PRODUCT USED FOR UNKNOWN INDICATION
  3. REFLUX MEDICATIONS [Concomitant]
     Indication: PRODUCT USED FOR UNKNOWN INDICATION
  4. HUMIRA [Suspect]
     Indication: IRITIS
     Dates: start: 20100701

REACTIONS (5)
  - DEVICE MALFUNCTION [None]
  - EYE PAIN [None]
  - DRUG DOSE OMISSION [None]
  - INJECTION SITE PAIN [None]
  - HEADACHE [None]
